FAERS Safety Report 25595084 (Version 1)
Quarter: 2025Q3

REPORT INFORMATION
  Report Type: Spontaneous
  Country: US (occurrence: US)
  Receive Date: 20250723
  Receipt Date: 20250723
  Transmission Date: 20251021
  Serious: Yes (Other)
  Sender: RANBAXY
  Company Number: US-SUN PHARMACEUTICAL INDUSTRIES LTD-2025R1-517792

PATIENT
  Age: 64 Year
  Sex: Female

DRUGS (3)
  1. TESTOSTERONE [Suspect]
     Active Substance: TESTOSTERONE
     Indication: Menopause
     Route: 065
  2. ESTROGENS [Suspect]
     Active Substance: ESTROGENS
     Indication: Menopause
     Route: 065
  3. PROGESTERONE [Suspect]
     Active Substance: PROGESTERONE
     Indication: Menopause
     Route: 065

REACTIONS (1)
  - Intraductal papilloma of breast [Unknown]
